FAERS Safety Report 15738163 (Version 1)
Quarter: 2018Q4

REPORT INFORMATION
  Report Type: Spontaneous
  Country: ES (occurrence: ES)
  Receive Date: 20181219
  Receipt Date: 20181219
  Transmission Date: 20190205
  Serious: Yes (Other)
  Sender: FDA-Public Use
  Company Number: ES-SUN PHARMACEUTICAL INDUSTRIES LTD-2018RR-194079

PATIENT
  Age: 33 Year
  Sex: Female

DRUGS (3)
  1. OMEPRAZOLE. [Suspect]
     Active Substance: OMEPRAZOLE
     Dosage: 40 MILLIGRAM
     Route: 065
  2. OMEPRAZOLE. [Suspect]
     Active Substance: OMEPRAZOLE
     Indication: DYSPEPSIA
     Dosage: 20 MILLIGRAM, DAILY, FOR AT LEAST ONE YEAR INTERMITTENTLY
     Route: 065
  3. FERROUS SULFATE. [Suspect]
     Active Substance: FERROUS SULFATE
     Indication: IRON DEFICIENCY ANAEMIA
     Dosage: 80 MILLIGRAM, DAILY
     Route: 065

REACTIONS (4)
  - Malabsorption [Recovering/Resolving]
  - Drug intolerance [Unknown]
  - Iron deficiency anaemia [Recovered/Resolved]
  - Drug effect incomplete [Unknown]
